FAERS Safety Report 4385351-1 (Version None)
Quarter: 2004Q2

REPORT INFORMATION
  Report Type: 
  Country: None (occurrence: None)
  Receive Date: 20040622
  Receipt Date: 20040610
  Transmission Date: 20050107
  Serious: Yes (Other)
  Sender: FDA-Public Use
  Company Number: 2004022927

PATIENT
  Age: 42 Year
  Sex: Male

DRUGS (4)
  1. DILANTIN [Suspect]
     Indication: LABYRINTHITIS
     Dosage: 100 MG (100 MG, 1 IN 1D)
     Dates: start: 19920101, end: 20040101
  2. DIAZEPAM [Concomitant]
  3. ACETAZOLAMIDE [Concomitant]
  4. MECLOZINE HYDROCHLORIDE (MECLOZINE HYDROCHLORIDE) [Concomitant]

REACTIONS (1)
  - GYNAECOMASTIA [None]
